FAERS Safety Report 15982044 (Version 2)
Quarter: 2019Q2

REPORT INFORMATION
  Report Type: Report from Study
  Country: US (occurrence: US)
  Receive Date: 20190219
  Receipt Date: 20190401
  Transmission Date: 20190711
  Serious: Yes (Death)
  Sender: FDA-Public Use
  Company Number: US-BAUSCH-BL-2019-004882

PATIENT
  Sex: Male
  Weight: 93.07 kg

DRUGS (1)
  1. RELISTOR [Suspect]
     Active Substance: METHYLNALTREXONE BROMIDE
     Indication: CONSTIPATION
     Dosage: 3 TABLETS ONCE DAILY
     Route: 048
     Dates: start: 20180213

REACTIONS (1)
  - Death [Fatal]
